FAERS Safety Report 9387041 (Version 1)
Quarter: 2013Q3

REPORT INFORMATION
  Report Type: Spontaneous
  Country: US (occurrence: None)
  Receive Date: 20130703
  Receipt Date: 20130703
  Transmission Date: 20140515
  Serious: No
  Sender: FDA-Public Use
  Company Number: None

PATIENT
  Age: 43 Year
  Sex: Male
  Weight: 86.18 kg

DRUGS (1)
  1. METHYLPHENIDATE [Suspect]
     Indication: ATTENTION DEFICIT/HYPERACTIVITY DISORDER
     Route: 048
     Dates: start: 20130515, end: 20130702

REACTIONS (7)
  - Heart rate increased [None]
  - Vision blurred [None]
  - Hallucination [None]
  - Anxiety [None]
  - Restlessness [None]
  - Insomnia [None]
  - Nausea [None]
